FAERS Safety Report 24646423 (Version 3)
Quarter: 2025Q3

REPORT INFORMATION
  Report Type: Report from Study
  Country: US (occurrence: US)
  Receive Date: 20241121
  Receipt Date: 20250810
  Transmission Date: 20251020
  Serious: Yes (Hospitalization, Other)
  Sender: ALEXION PHARMACEUTICALS
  Company Number: US-AstraZeneca-CH-00748730A

PATIENT
  Sex: Female

DRUGS (2)
  1. ULTOMIRIS [Suspect]
     Active Substance: RAVULIZUMAB-CWVZ
     Indication: Myasthenia gravis
  2. METFORMIN [Suspect]
     Active Substance: METFORMIN HYDROCHLORIDE
     Indication: Type 2 diabetes mellitus
     Route: 065

REACTIONS (9)
  - Thrombosis [Unknown]
  - Type 2 diabetes mellitus [Unknown]
  - Strabismus [Unknown]
  - Eyelid ptosis [Unknown]
  - Diarrhoea [Unknown]
  - Intervertebral disc degeneration [Unknown]
  - Hypoaesthesia [Unknown]
  - Depressed mood [Unknown]
  - Fatigue [Unknown]
